FAERS Safety Report 4788681-4 (Version None)
Quarter: 2005Q4

REPORT INFORMATION
  Report Type: 
  Country: None (occurrence: None)
  Receive Date: 20051003
  Receipt Date: 20050823
  Transmission Date: 20060501
  Serious: Yes (Hospitalization)
  Sender: FDA-Public Use
  Company Number: 142942USA

PATIENT
  Age: 65 Year
  Sex: Male
  Weight: 90.8 kg

DRUGS (12)
  1. VINCRISTINE [Suspect]
     Indication: T-CELL LYMPHOMA
     Dosage: 2 MILLIGRAM
     Dates: start: 20040101
  2. METHOTREXATE [Suspect]
     Indication: T-CELL LYMPHOMA
     Dates: start: 20040101
  3. CISPLATIN [Suspect]
     Indication: T-CELL LYMPHOMA
     Dates: start: 20040101
  4. CYTARABINE [Suspect]
     Indication: T-CELL LYMPHOMA
     Dates: start: 20040101
  5. CYCLOPHOSPHAMIDE [Suspect]
     Indication: T-CELL LYMPHOMA
     Dates: start: 20040101
  6. NEULASTA [Concomitant]
  7. DEXAMETHASONE [Concomitant]
  8. PROMETHAZINE HYDROCHLORIDE [Concomitant]
  9. SODIUM CHLORIDE [Concomitant]
  10. LACTULOSE [Concomitant]
  11. GALENIC/GLUCOSE/SODIUM CHLORIDE/POTASSIUM CHLORIDE [Concomitant]
  12. PROCRIT [Concomitant]

REACTIONS (5)
  - HAEMOGLOBIN DECREASED [None]
  - HYPOAESTHESIA [None]
  - PARAESTHESIA [None]
  - PLATELET COUNT DECREASED [None]
  - WHITE BLOOD CELL COUNT DECREASED [None]
